FAERS Safety Report 4989345-4 (Version None)
Quarter: 2006Q2

REPORT INFORMATION
  Report Type: 
  Country: None (occurrence: None)
  Receive Date: 20060426
  Receipt Date: 20060418
  Transmission Date: 20061013
  Serious: Yes (Death, Hospitalization)
  Sender: FDA-Public Use
  Company Number: 2006MP000535

PATIENT
  Age: 86 Year
  Sex: Male

DRUGS (4)
  1. AGGRASTAT [Suspect]
     Indication: ACUTE MYOCARDIAL INFARCTION
     Dosage: IV
     Route: 042
     Dates: start: 20060329, end: 20060329
  2. AGGRASTAT [Suspect]
     Indication: ANGINA UNSTABLE
     Dosage: IV
     Route: 042
     Dates: start: 20060329, end: 20060329
  3. ASPIRIN [Concomitant]
  4. CONCOR [Concomitant]

REACTIONS (2)
  - BRADYARRHYTHMIA [None]
  - CARDIOGENIC SHOCK [None]
